FAERS Safety Report 18433304 (Version 2)
Quarter: 2020Q4

REPORT INFORMATION
  Report Type: Spontaneous
  Country: JP (occurrence: JP)
  Receive Date: 20201027
  Receipt Date: 20201105
  Transmission Date: 20210114
  Serious: Yes (Hospitalization, Other)
  Sender: FDA-Public Use
  Company Number: JP-DSJP-DSJ-2020-130768

PATIENT
  Age: 7 Decade
  Sex: Female
  Weight: 62 kg

DRUGS (2)
  1. OLMETEC OD TABLETS 20MG [Suspect]
     Active Substance: OLMESARTAN MEDOXOMIL
     Indication: HYPERTENSION
     Dosage: 20 MG, QD
     Route: 048
  2. OLMETEC OD TABLETS 20MG [Suspect]
     Active Substance: OLMESARTAN MEDOXOMIL
     Dosage: 20 MG, QOD
     Route: 048

REACTIONS (3)
  - Inappropriate schedule of product administration [Unknown]
  - Product administration interrupted [Unknown]
  - Cerebral haemorrhage [Unknown]
